FAERS Safety Report 7611411-5 (Version None)
Quarter: 2011Q3

REPORT INFORMATION
  Report Type: 
  Country: None (occurrence: None)
  Receive Date: 20110715
  Receipt Date: 20110706
  Transmission Date: 20111222
  Serious: Yes (Hospitalization)
  Sender: FDA-Public Use
  Company Number: GB-ROCHE-788049

PATIENT
  Sex: Male
  Weight: 53.8 kg

DRUGS (7)
  1. LANSOPRAZOLE [Concomitant]
     Dates: start: 20110501
  2. CAPECITABINE [Suspect]
     Dosage: DATE OF LAST DOSE PRIOR TOSAE 07 JUNE 2011.  THERAPY TEMPORARILY INTERRUPTED.
     Route: 048
     Dates: start: 20100527
  3. DIPYRIDAMOLE [Concomitant]
     Dates: start: 20080801, end: 20110705
  4. ASPIRIN [Concomitant]
     Dates: start: 20080801, end: 20110705
  5. AMLODIPINE [Concomitant]
     Dates: start: 20110222
  6. SIMVASTATIN [Concomitant]
     Dates: start: 20080801
  7. BEVACIZUMAB [Suspect]
     Dosage: DATE OF LAST DOSE PRIOR TO SAE IS 14 JUNE 2011. THERAPY TEMPORARILY INTERRUPTED
     Route: 042
     Dates: start: 20100527

REACTIONS (1)
  - AMNESIA [None]
